FAERS Safety Report 13008629 (Version 6)
Quarter: 2019Q3

REPORT INFORMATION
  Report Type: Spontaneous
  Country: US (occurrence: US)
  Receive Date: 20161208
  Receipt Date: 20190812
  Transmission Date: 20191004
  Serious: Yes (Hospitalization, Other)
  Sender: FDA-Public Use
  Company Number: US-PFIZER INC-2016461418

PATIENT
  Age: 66 Year
  Sex: Female
  Weight: 98 kg

DRUGS (3)
  1. LYRICA [Suspect]
     Active Substance: PREGABALIN
     Indication: NERVE INJURY
     Dosage: 100 MG, 3X/DAY
     Route: 048
     Dates: start: 20160920
  2. LYRICA [Suspect]
     Active Substance: PREGABALIN
     Indication: PAIN
     Dosage: 100 MG, 2X/DAY
     Route: 048
     Dates: start: 201512, end: 2015
  3. LYRICA [Suspect]
     Active Substance: PREGABALIN
     Indication: SYRINGOMYELIA
     Dosage: 100 MG, 3X/DAY
     Route: 048
     Dates: start: 2015

REACTIONS (5)
  - Drug hypersensitivity [Unknown]
  - Cerebrospinal fluid leakage [Recovered/Resolved]
  - Intentional product use issue [Unknown]
  - Fatigue [Unknown]
  - Off label use [Unknown]

NARRATIVE: CASE EVENT DATE: 20170912
